FAERS Safety Report 6271085-5 (Version None)
Quarter: 2009Q3

REPORT INFORMATION
  Report Type: 
  Country: None (occurrence: None)
  Receive Date: 20090716
  Receipt Date: 20090709
  Transmission Date: 20100115
  Serious: Yes (Hospitalization, Other)
  Sender: FDA-Public Use
  Company Number: ZA-ALLERGAN-0909724US

PATIENT
  Age: 2 Year
  Sex: Male
  Weight: 10 kg

DRUGS (4)
  1. BOTOX [Suspect]
     Indication: CEREBRAL PALSY
     Dosage: 200 UNITS, SINGLE
     Route: 030
     Dates: start: 20090623, end: 20090623
  2. TOPAMAX [Concomitant]
     Indication: EPILEPSY
     Dosage: 1 TAB, QD
  3. PHENOBARB [Concomitant]
     Indication: EPILEPSY
     Dosage: 45 MG, QD
  4. SABRIL [Concomitant]
     Indication: EPILEPSY
     Dosage: UNK, BID
     Route: 048

REACTIONS (2)
  - LARYNGEAL OEDEMA [None]
  - STRIDOR [None]
